FAERS Safety Report 23262445 (Version 1)
Quarter: 2023Q4

REPORT INFORMATION
  Report Type: Other
  Country: None (occurrence: TW)
  Receive Date: 20231205
  Receipt Date: 20231205
  Transmission Date: 20240110
  Serious: Yes (Hospitalization)
  Sender: FDA-Public Use
  Company Number: TW-B.Braun Medical Inc.-2149005

PATIENT
  Age: 73 Year
  Sex: Female

DRUGS (1)
  1. CEFTRIAXONE SODIUM [Suspect]
     Active Substance: CEFTRIAXONE SODIUM
     Indication: Pyelonephritis chronic

REACTIONS (5)
  - Constipation [None]
  - Abdominal distension [None]
  - Dry mouth [None]
  - Diarrhoea [None]
  - Spleen disorder [None]
